FAERS Safety Report 8356186-X (Version None)
Quarter: 2012Q2

REPORT INFORMATION
  Report Type: 
  Country: None (occurrence: None)
  Receive Date: 20120514
  Receipt Date: 20120507
  Transmission Date: 20120825
  Serious: Yes (Death, Hospitalization)
  Sender: FDA-Public Use
  Company Number: JP-ASTELLAS-2012US004603

PATIENT
  Age: 35 Year
  Sex: Male

DRUGS (2)
  1. AMBISOME [Suspect]
     Indication: ADVERSE EVENT
     Dosage: 200 MG, UID/QD
     Route: 042
     Dates: start: 20090526, end: 20090602
  2. SPRYCEL [Suspect]
     Indication: BLAST CRISIS IN MYELOGENOUS LEUKAEMIA
     Dosage: 70 MG, BID
     Route: 048
     Dates: start: 20090327

REACTIONS (11)
  - BONE MARROW TRANSPLANT [None]
  - PNEUMONIA [None]
  - DEATH [None]
  - BLOOD COUNT ABNORMAL [None]
  - NAUSEA [None]
  - HYPOKALAEMIA [None]
  - BONE MARROW FAILURE [None]
  - DECREASED APPETITE [None]
  - MOUTH HAEMORRHAGE [None]
  - NEOPLASM MALIGNANT [None]
  - PYREXIA [None]
